FAERS Safety Report 8829813 (Version 4)
Quarter: 2014Q1

REPORT INFORMATION
  Report Type: Report from Study
  Country: DE (occurrence: DE)
  Receive Date: 20121008
  Receipt Date: 20140121
  Transmission Date: 20141002
  Serious: Yes (Hospitalization)
  Sender: FDA-Public Use
  Company Number: DE-VERTEX PHARMACEUTICAL INC.-000000000000000799

PATIENT
  Age: 52 Year
  Sex: Female
  Weight: 64 kg

DRUGS (6)
  1. VX-950 (TELAPREVIR) [Suspect]
     Indication: HEPATITIS C
     Dosage: 2250 MG
     Route: 048
     Dates: start: 20120225, end: 20120520
  2. PEGASYS [Suspect]
     Indication: CHRONIC HEPATITIS C
     Dosage: 180 ?G, QW
     Route: 058
     Dates: start: 20120225
  3. COPEGUS [Suspect]
     Indication: CHRONIC HEPATITIS C
     Dosage: 1000 MG, QD
     Route: 048
     Dates: start: 20120225
  4. COPEGUS [Suspect]
     Dosage: 600 MG, UNK
     Route: 048
  5. PROVASC [Concomitant]
     Indication: HYPERTENSION
     Dosage: 160 MG, QD
     Route: 048
  6. PROVASCUL [Concomitant]
     Indication: HYPERTENSION
     Dosage: 160 UNK, UNK
     Route: 048

REACTIONS (1)
  - Renal failure acute [Recovered/Resolved]
